FAERS Safety Report 4470577-9 (Version None)
Quarter: 2004Q4

REPORT INFORMATION
  Report Type: 
  Country: None (occurrence: None)
  Receive Date: 20041005
  Receipt Date: 20030916
  Transmission Date: 20050328
  Serious: Yes (Hospitalization)
  Sender: FDA-Public Use
  Company Number: STA-AE-03-027

PATIENT
  Age: 44 Year
  Sex: Male

DRUGS (5)
  1. DIAZEPAM TABLETS, USP [Suspect]
     Indication: INSOMNIA
     Dosage: 10 M G, H.S., ORAL
     Route: 048
  2. DIAZEPAM TABLETS, USP [Suspect]
     Indication: INSOMNIA
     Dosage: 5 MG, H.S., ORAL
     Route: 048
  3. PHENYTOIN [Suspect]
     Indication: CONVULSION
     Dosage: 300 MG IN AM AND 400MG AT SUPPER, ORAL
     Route: 048
  4. LAMOTRIGINE [Concomitant]
  5. PHENOBARBITAL TAB [Concomitant]

REACTIONS (19)
  - ATAXIA [None]
  - BALANCE DISORDER [None]
  - CLUMSINESS [None]
  - CONFUSIONAL STATE [None]
  - CONVULSION [None]
  - COORDINATION ABNORMAL [None]
  - DIPLOPIA [None]
  - DRUG INTERACTION [None]
  - DRUG LEVEL INCREASED [None]
  - DYSARTHRIA [None]
  - HEADACHE [None]
  - INSOMNIA [None]
  - MALAISE [None]
  - MEMORY IMPAIRMENT [None]
  - NYSTAGMUS [None]
  - PRODUCTIVE COUGH [None]
  - SOMNOLENCE [None]
  - SPUTUM PURULENT [None]
  - UPPER RESPIRATORY TRACT INFECTION [None]
